FAERS Safety Report 17044353 (Version 1)
Quarter: 2019Q4

REPORT INFORMATION
  Report Type: Spontaneous
  Country: US (occurrence: US)
  Receive Date: 20191116
  Receipt Date: 20191116
  Transmission Date: 20200122
  Serious: Yes (Death)
  Sender: FDA-Public Use
  Company Number: None

PATIENT
  Age: 57 Year
  Sex: Female
  Weight: 58 kg

DRUGS (1)
  1. CARFILZOMIB [Suspect]
     Active Substance: CARFILZOMIB
     Indication: PLASMA CELL MYELOMA

REACTIONS (4)
  - Cardiac arrest [None]
  - Pulseless electrical activity [None]
  - Myocarditis [None]
  - Ventricular tachycardia [None]

NARRATIVE: CASE EVENT DATE: 20191116
